FAERS Safety Report 9789094 (Version 2)
Quarter: 2014Q1

REPORT INFORMATION
  Report Type: Spontaneous
  Country: US (occurrence: US)
  Receive Date: 20131230
  Receipt Date: 20140210
  Transmission Date: 20141002
  Serious: No
  Sender: FDA-Public Use
  Company Number: US-TEVA-451869USA

PATIENT
  Age: 32 Year
  Sex: Female
  Weight: 59.02 kg

DRUGS (5)
  1. PARAGARD 380A [Suspect]
     Indication: CONTRACEPTION
     Route: 015
     Dates: start: 20131216, end: 20131216
  2. NORVASC [Concomitant]
  3. DIAZIDE [Concomitant]
  4. CHLOR CON [Concomitant]
  5. ADVIL [Concomitant]

REACTIONS (2)
  - Pain [Recovered/Resolved]
  - Medical device complication [Recovered/Resolved]
